FAERS Safety Report 5804568-X (Version None)
Quarter: 2008Q3

REPORT INFORMATION
  Report Type: 
  Country: None (occurrence: None)
  Receive Date: 20080707
  Receipt Date: 20080625
  Transmission Date: 20090109
  Serious: Yes (Hospitalization)
  Sender: FDA-Public Use
  Company Number: 2008BI016223

PATIENT
  Age: 50 Year
  Sex: Male
  Weight: 88.4514 kg

DRUGS (1)
  1. AVONEX [Suspect]
     Indication: MULTIPLE SCLEROSIS
     Dosage: 30 UG;QW;IM
     Route: 030
     Dates: start: 19990201, end: 20080530

REACTIONS (5)
  - BLOOD PRESSURE INCREASED [None]
  - HEART INJURY [None]
  - MOOD SWINGS [None]
  - MYOCARDIAL INFARCTION [None]
  - RESTLESSNESS [None]
